FAERS Safety Report 16610633 (Version 1)
Quarter: 2019Q3

REPORT INFORMATION
  Report Type: Spontaneous
  Country: DK (occurrence: DK)
  Receive Date: 20190722
  Receipt Date: 20190722
  Transmission Date: 20191004
  Serious: Yes (Hospitalization)
  Sender: FDA-Public Use
  Company Number: PHHY2019DK165878

PATIENT
  Age: 62 Year
  Sex: Male

DRUGS (1)
  1. MIDOSTAURIN [Suspect]
     Active Substance: MIDOSTAURIN
     Indication: ACUTE MYELOID LEUKAEMIA
     Dosage: UNK
     Route: 065

REACTIONS (8)
  - Pulmonary embolism [Unknown]
  - Liver disorder [Unknown]
  - Blood bilirubin increased [Unknown]
  - Pulmonary thrombosis [Unknown]
  - Spleen disorder [Unknown]
  - Thrombosis [Unknown]
  - Intestinal ischaemia [Unknown]
  - Anaemia [Unknown]
